FAERS Safety Report 5852134-2 (Version None)
Quarter: 2008Q3

REPORT INFORMATION
  Report Type: 
  Country: None (occurrence: None)
  Receive Date: 20080821
  Receipt Date: 20080811
  Transmission Date: 20090109
  Serious: Yes (Hospitalization)
  Sender: FDA-Public Use
  Company Number: JP-ASTRAZENECA-2008AP06009

PATIENT
  Age: 40 Year
  Sex: Female
  Weight: 56 kg

DRUGS (5)
  1. ARIMIDEX [Suspect]
     Indication: BREAST CANCER
     Route: 048
     Dates: start: 20080221
  2. ZOLADEX [Suspect]
     Indication: BREAST CANCER
     Route: 058
     Dates: start: 20080221
  3. GOSHA-JINKI-GAN [Concomitant]
     Indication: OEDEMA PERIPHERAL
     Dosage: NUMBER OF SEPARATE DOSAGES UNKNOWN
     Route: 048
     Dates: start: 20080709
  4. MEIACT [Concomitant]
     Indication: CYST
     Dosage: DOSE UNKNOWN
     Route: 048
     Dates: start: 20080731, end: 20080804
  5. LOXONIN [Concomitant]
     Indication: ANALGESIA
     Dosage: DOSE UNKNOWN
     Route: 048
     Dates: start: 20080731, end: 20080804

REACTIONS (1)
  - NECK MASS [None]
